FAERS Safety Report 10089811 (Version 1)
Quarter: 2014Q2

REPORT INFORMATION
  Report Type: Spontaneous
  Country: GB (occurrence: None)
  Receive Date: 20140417
  Receipt Date: 20140417
  Transmission Date: 20141212
  Serious: Yes (Hospitalization, Other)
  Sender: FDA-Public Use
  Company Number: AUR-APL-2014-04486

PATIENT
  Age: 47 Year
  Sex: Female
  Weight: 57 kg

DRUGS (5)
  1. ALENDRONIC ACID [Suspect]
     Indication: OSTEOPOROSIS
     Dosage: 1 IN 1 WK
     Route: 048
     Dates: start: 20140314, end: 20140327
  2. ADCAL-D3 (LEKOVIT CA) [Concomitant]
  3. CO-CODAMOL (PANADEINE CO) [Concomitant]
  4. LANSOPRAZOLE [Concomitant]
  5. METFORMIN [Concomitant]

REACTIONS (3)
  - Oesophagitis [None]
  - Odynophagia [None]
  - Decreased appetite [None]
